FAERS Safety Report 4971606-6 (Version None)
Quarter: 2006Q2

REPORT INFORMATION
  Report Type: 
  Country: None (occurrence: None)
  Receive Date: 20060407
  Receipt Date: 20060328
  Transmission Date: 20061013
  Serious: Yes (Other)
  Sender: FDA-Public Use
  Company Number: 2006041855

PATIENT
  Age: 34 Year
  Sex: Male

DRUGS (1)
  1. UNISOM [Suspect]
     Indication: ACCIDENTAL EXPOSURE
     Dosage: 8 SLEEPGELS ONCE, ORAL
     Route: 048
     Dates: start: 20060328, end: 20060328

REACTIONS (5)
  - ACCIDENTAL EXPOSURE [None]
  - FEELING ABNORMAL [None]
  - HEART RATE INCREASED [None]
  - INCOHERENT [None]
  - PANIC ATTACK [None]
